FAERS Safety Report 9983584 (Version 1)
Quarter: 2014Q1

REPORT INFORMATION
  Report Type: Spontaneous
  Country: US (occurrence: US)
  Receive Date: 20140307
  Receipt Date: 20140307
  Transmission Date: 20141002
  Serious: Yes (Other)
  Sender: FDA-Public Use
  Company Number: US-SA-2014SA027445

PATIENT
  Age: 34 Year
  Sex: Female
  Weight: 69 kg

DRUGS (12)
  1. CYCLOPHOSPHAMIDE [Suspect]
     Indication: BREAST CANCER
     Route: 065
  2. METOCLOPRAMIDE [Suspect]
     Indication: PRODUCT USED FOR UNKNOWN INDICATION
     Route: 065
  3. PROMETHAZINE [Suspect]
     Indication: PRODUCT USED FOR UNKNOWN INDICATION
     Route: 065
  4. ACETAMINOPHEN [Suspect]
     Indication: PRODUCT USED FOR UNKNOWN INDICATION
     Route: 065
  5. DOXORUBICIN [Suspect]
     Indication: BREAST CANCER
     Route: 042
  6. DOLASETRON MESYLATE [Suspect]
     Indication: PRODUCT USED FOR UNKNOWN INDICATION
     Route: 065
  7. APREPITANT [Concomitant]
  8. DOXYLAMINE [Concomitant]
  9. HYDROCODONE [Concomitant]
  10. POLYETHYLENE GLYCOL [Concomitant]
  11. MULTIVITAMINS [Concomitant]
  12. TRASTUZUMAB [Concomitant]
     Indication: METASTASES TO LUNG

REACTIONS (2)
  - Cardiac failure congestive [Unknown]
  - Exposure during pregnancy [Unknown]
